FAERS Safety Report 4469066-7 (Version None)
Quarter: 2004Q4

REPORT INFORMATION
  Report Type: 
  Country: None (occurrence: None)
  Receive Date: 20041006
  Receipt Date: 20041006
  Transmission Date: 20050328
  Serious: Yes (Hospitalization)
  Sender: FDA-Public Use
  Company Number: None

PATIENT
  Sex: Male

DRUGS (6)
  1. IRESSA [Suspect]
     Indication: CARCINOMA
     Dosage: 250 MG DAILY PO
     Route: 048
     Dates: start: 20040524, end: 20040922
  2. AMIODARONE [Suspect]
     Indication: ARRHYTHMIA
     Dosage: 200 MG DAILY PO
     Route: 048
  3. NEXIUM [Suspect]
     Indication: PALPITATIONS
     Dosage: 40 MG DAILY PO
     Route: 048
  4. ZOCOR [Suspect]
     Dosage: 40 MG DAILY PO
     Route: 048
  5. DURAGESIC [Suspect]
     Indication: PAIN
     Dosage: 25 MCG 72 HRS DERM
     Route: 062
  6. CIPRO [Suspect]
     Indication: URINARY TRACT INFECTION
     Dosage: 500 MG BID PO
     Route: 048

REACTIONS (7)
  - ASTHENIA [None]
  - BLOOD CULTURE POSITIVE [None]
  - CULTURE URINE POSITIVE [None]
  - DEHYDRATION [None]
  - DIARRHOEA [None]
  - HYPOTENSION [None]
  - KLEBSIELLA INFECTION [None]
